FAERS Safety Report 24687537 (Version 1)
Quarter: 2024Q4

REPORT INFORMATION
  Report Type: Spontaneous
  Country: US (occurrence: None)
  Receive Date: 20241202
  Receipt Date: 20241202
  Transmission Date: 20250115
  Serious: Yes (unspecified)
  Sender: Public
  Company Number: None

PATIENT
  Age: 22 Year
  Sex: Female
  Weight: 61.2 kg

DRUGS (1)
  1. KETOROLAC [Suspect]
     Active Substance: KETOROLAC TROMETHAMINE
     Indication: Labour complication
     Dosage: OTHER FREQUENCY : ONCE;?
     Route: 030

REACTIONS (5)
  - Erythema [None]
  - Erythema [None]
  - Erythema [None]
  - Pruritus [None]
  - Dyspnoea [None]

NARRATIVE: CASE EVENT DATE: 20241127
